FAERS Safety Report 13902007 (Version 1)
Quarter: 2017Q3

REPORT INFORMATION
  Report Type: Spontaneous
  Country: CA (occurrence: CA)
  Receive Date: 20170824
  Receipt Date: 20170824
  Transmission Date: 20171127
  Serious: Yes (Hospitalization, Other)
  Sender: FDA-Public Use
  Company Number: CA-PFIZER INC-2017362508

PATIENT
  Sex: Female

DRUGS (1)
  1. VFEND [Suspect]
     Active Substance: VORICONAZOLE
     Dosage: UNK
     Dates: start: 2017, end: 2017

REACTIONS (6)
  - Anaphylactic reaction [Unknown]
  - Pruritus [Unknown]
  - Visual impairment [Unknown]
  - Hypertension [Unknown]
  - Pharyngeal oedema [Unknown]
  - Eye colour change [Unknown]

NARRATIVE: CASE EVENT DATE: 20170804
